FAERS Safety Report 21980120 (Version 1)
Quarter: 2023Q1

REPORT INFORMATION
  Report Type: Report from Study
  Country: US (occurrence: US)
  Receive Date: 20230210
  Receipt Date: 20230210
  Transmission Date: 20230418
  Serious: Yes (Death, Hospitalization, Other)
  Sender: FDA-Public Use
  Company Number: US-SHIRE-US201919487

PATIENT
  Age: 18 Year
  Sex: Male
  Weight: 47 kg

DRUGS (21)
  1. IDURSULFASE [Suspect]
     Active Substance: IDURSULFASE
     Indication: Mucopolysaccharidosis II
     Dosage: UNK
     Route: 042
     Dates: start: 20060829
  2. IDURSULFASE [Suspect]
     Active Substance: IDURSULFASE
     Dosage: 0.53 MILLIGRAM/KILOGRAM
     Route: 042
     Dates: start: 20071207
  3. IDURSULFASE [Suspect]
     Active Substance: IDURSULFASE
     Dosage: 30 MILLIGRAM, 1X/WEEK
     Route: 042
     Dates: start: 20170201, end: 20180921
  4. IDURSULFASE [Suspect]
     Active Substance: IDURSULFASE
     Dosage: 36 MILLIGRAM, 1X/WEEK
     Route: 042
     Dates: start: 20181208, end: 20190607
  5. VASOSTRICT [Concomitant]
     Active Substance: VASOPRESSIN
     Indication: Product used for unknown indication
  6. ADRENALIN (EPINEPHRINE) [Concomitant]
     Active Substance: EPINEPHRINE
     Indication: Product used for unknown indication
  7. LEVOPHED [Concomitant]
     Active Substance: NOREPINEPHRINE BITARTRATE
     Indication: Product used for unknown indication
  8. SODIUM CHLORIDE [Concomitant]
     Active Substance: SODIUM CHLORIDE
     Indication: Product used for unknown indication
  9. CLARITIN [Concomitant]
     Active Substance: LORATADINE
     Indication: Product used for unknown indication
  10. FLOVENT HFA [Concomitant]
     Active Substance: FLUTICASONE PROPIONATE
     Indication: Product used for unknown indication
  11. FERROUS SULFATE [Concomitant]
     Active Substance: FERROUS SULFATE
     Indication: Product used for unknown indication
  12. LEVOFLOXACIN [Concomitant]
     Active Substance: LEVOFLOXACIN
     Indication: Product used for unknown indication
  13. BENADRYL [Concomitant]
     Active Substance: DIPHENHYDRAMINE HYDROCHLORIDE
     Indication: Product used for unknown indication
  14. ACCUNEB [Concomitant]
     Active Substance: ALBUTEROL SULFATE
     Indication: Product used for unknown indication
  15. ASPIRIN [Concomitant]
     Active Substance: ASPIRIN
     Indication: Product used for unknown indication
  16. COUMADIN [Concomitant]
     Active Substance: WARFARIN SODIUM
     Indication: Product used for unknown indication
  17. PROVENTIL [Concomitant]
     Active Substance: ALBUTEROL
     Indication: Product used for unknown indication
  18. IRON [Concomitant]
     Active Substance: IRON
     Indication: Product used for unknown indication
  19. FLONASE [Concomitant]
     Active Substance: FLUTICASONE PROPIONATE
     Indication: Product used for unknown indication
  20. HEPARIN [Concomitant]
     Active Substance: HEPARIN SODIUM
     Indication: Product used for unknown indication
  21. EMLA [Concomitant]
     Active Substance: LIDOCAINE\PRILOCAINE
     Indication: Product used for unknown indication

REACTIONS (4)
  - Cardiac arrest [Fatal]
  - Respiratory failure [Fatal]
  - Respiratory distress [Unknown]
  - Dyspnoea [Unknown]

NARRATIVE: CASE EVENT DATE: 20190610
